FAERS Safety Report 13538911 (Version 1)
Quarter: 2017Q2

REPORT INFORMATION
  Report Type: Spontaneous
  Country: US (occurrence: US)
  Receive Date: 20170511
  Receipt Date: 20170511
  Transmission Date: 20170830
  Serious: No
  Sender: FDA-Public Use
  Company Number: None

PATIENT
  Age: 71 Year
  Sex: Female
  Weight: 68.4 kg

DRUGS (9)
  1. COMBIVENT RESPIMAT [Concomitant]
     Active Substance: ALBUTEROL SULFATE\IPRATROPIUM BROMIDE
  2. VITAMIN C [Concomitant]
     Active Substance: ASCORBIC ACID
  3. MAGNEIUM [Concomitant]
  4. CRANBERRY. [Concomitant]
     Active Substance: CRANBERRY
  5. ADVAIR HFA [Concomitant]
     Active Substance: FLUTICASONE PROPIONATE\SALMETEROL XINAFOATE
  6. CALCIUM 600-VITAMIN D-3 400 [Concomitant]
  7. ALENDRONATE [Suspect]
     Active Substance: ALENDRONATE SODIUM
     Indication: OSTEOPOROSIS
     Dosage: ?          QUANTITY:4 TABLET(S);OTHER FREQUENCY:ONE PER WEEK;?
     Route: 048
     Dates: start: 20170508
  8. AMLODDIPINE [Concomitant]
  9. MONTELUKAST [Concomitant]
     Active Substance: MONTELUKAST SODIUM

REACTIONS (2)
  - Back pain [None]
  - Movement disorder [None]

NARRATIVE: CASE EVENT DATE: 20170508
